FAERS Safety Report 7302558-1 (Version None)
Quarter: 2011Q1

REPORT INFORMATION
  Report Type: 
  Country: None (occurrence: None)
  Receive Date: 20110218
  Receipt Date: 20110211
  Transmission Date: 20110831
  Serious: No
  Sender: FDA-Public Use
  Company Number: US-PFIZER INC-2010130944

PATIENT
  Sex: Female

DRUGS (8)
  1. SIMVASTATIN [Concomitant]
     Indication: BLOOD CHOLESTEROL ABNORMAL
     Dosage: 40 MG, 1X/DAY
     Route: 048
  2. HYDROXYZINE PAMOATE [Interacting]
     Indication: ANXIETY
     Dosage: 25 MG, 1X/DAY
     Route: 048
     Dates: start: 20100912
  3. DOXAZOSIN MESILATE [Concomitant]
     Indication: HYPERTENSION
     Dosage: 8 MG, 1X/DAY
     Route: 048
  4. CLONIDINE [Concomitant]
     Indication: HYPERTENSION
     Dosage: 0.2 MG, 2X/DAY
     Route: 048
  5. FUROSEMIDE [Concomitant]
     Indication: FLUID RETENTION
     Dosage: 40 MG, 2X/DAY
     Route: 048
  6. AMLODIPINE [Concomitant]
     Dosage: 10 MG, 1X/DAY
     Route: 048
  7. SERTRALINE HYDROCHLORIDE [Suspect]
     Indication: ANXIETY
     Dosage: HALF OF THE 50 MG DAILY
     Route: 048
     Dates: start: 20101012
  8. ATENOLOL [Concomitant]
     Indication: HEART RATE IRREGULAR
     Dosage: 25 MG, 1X/DAY
     Route: 048

REACTIONS (6)
  - INCORRECT DOSE ADMINISTERED [None]
  - DRUG INTERACTION [None]
  - FEAR [None]
  - INSOMNIA [None]
  - NERVOUSNESS [None]
  - CONFUSIONAL STATE [None]
